FAERS Safety Report 10960401 (Version 1)
Quarter: 2015Q1

REPORT INFORMATION
  Report Type: Report from Study
  Country: CA (occurrence: CA)
  Receive Date: 20150327
  Receipt Date: 20150327
  Transmission Date: 20150721
  Serious: Yes (Death, Hospitalization)
  Sender: FDA-Public Use
  Company Number: CA-JNJFOC-20150219383

PATIENT
  Sex: Female

DRUGS (2)
  1. TYLENOL [Suspect]
     Active Substance: ACETAMINOPHEN
     Indication: PRODUCT USED FOR UNKNOWN INDICATION
     Dosage: PATIENT INGESTED PARACETAMOL ON REGULAR BASIS.
     Route: 048
     Dates: start: 20070702, end: 20070705
  2. TYLENOL [Suspect]
     Active Substance: ACETAMINOPHEN
     Route: 048

REACTIONS (7)
  - Acute hepatic failure [Fatal]
  - Pulseless electrical activity [Fatal]
  - Hepatotoxicity [Fatal]
  - Toxicity to various agents [Fatal]
  - Rhabdomyolysis [Fatal]
  - Overdose [Fatal]
  - Acute kidney injury [Fatal]
